FAERS Safety Report 11442585 (Version 3)
Quarter: 2018Q2

REPORT INFORMATION
  Report Type: Spontaneous
  Country: US (occurrence: US)
  Receive Date: 20150901
  Receipt Date: 20180604
  Transmission Date: 20180711
  Serious: Yes (Other)
  Sender: FDA-Public Use
  Company Number: US-BAYER-2015-412098

PATIENT
  Age: 29 Year
  Sex: Female
  Weight: 89.35 kg

DRUGS (1)
  1. MIRENA [Suspect]
     Active Substance: LEVONORGESTREL
     Dosage: 20 MCG/24HR, CONT
     Route: 015

REACTIONS (59)
  - Fatigue [Recovered/Resolved]
  - Mood swings [Recovered/Resolved]
  - Acne [Recovered/Resolved]
  - Musculoskeletal pain [Recovered/Resolved]
  - Headache [Recovered/Resolved]
  - Vomiting [Recovered/Resolved]
  - Paraesthesia [Recovered/Resolved]
  - Insomnia [Recovered/Resolved]
  - Memory impairment [Recovered/Resolved]
  - Hot flush [Recovered/Resolved]
  - Night sweats [Recovered/Resolved]
  - Ligament rupture [Recovered/Resolved]
  - Depression [Recovered/Resolved]
  - Tooth disorder [Recovered/Resolved]
  - Ovulation pain [Recovered/Resolved]
  - Nausea [Recovered/Resolved]
  - Irritable bowel syndrome [Recovered/Resolved]
  - Gastrointestinal pain [Recovered/Resolved]
  - Tinnitus [Recovered/Resolved]
  - Female sexual dysfunction [Recovered/Resolved]
  - Dysmenorrhoea [Recovered/Resolved]
  - Uterine perforation [Unknown]
  - Genital haemorrhage [Recovered/Resolved]
  - Dyspareunia [Recovered/Resolved]
  - Abdominal distension [Recovered/Resolved]
  - Anorgasmia [Recovered/Resolved]
  - Arthritis [Recovering/Resolving]
  - Bone pain [Recovered/Resolved]
  - Pollakiuria [Recovered/Resolved]
  - Allergy to metals [Recovered/Resolved]
  - Menorrhagia [Recovered/Resolved]
  - Vaginal discharge [Recovered/Resolved]
  - Fallopian tube perforation [Recovered/Resolved]
  - Back pain [Unknown]
  - Migraine [Recovered/Resolved]
  - Thinking abnormal [Recovered/Resolved]
  - Peripheral swelling [Recovering/Resolving]
  - Weight loss poor [Recovered/Resolved]
  - Hirsutism [Recovered/Resolved]
  - Joint range of motion decreased [Recovered/Resolved]
  - Kidney infection [Recovered/Resolved]
  - Coital bleeding [Recovered/Resolved]
  - Pain [Recovered/Resolved]
  - Neuralgia [Recovered/Resolved]
  - Anxiety [Recovered/Resolved]
  - Anger [Recovered/Resolved]
  - Alopecia [Recovered/Resolved]
  - Hypoaesthesia [Recovered/Resolved]
  - Weight increased [Recovered/Resolved]
  - Device monitoring procedure not performed [Unknown]
  - Intervertebral disc degeneration [Recovered/Resolved]
  - Bacterial vaginosis [Recovered/Resolved]
  - Loss of libido [Recovered/Resolved]
  - Constipation [Recovered/Resolved]
  - Diarrhoea [Recovered/Resolved]
  - Gastrooesophageal reflux disease [Recovered/Resolved]
  - Hepatic steatosis [Recovered/Resolved]
  - Urinary tract infection [Recovered/Resolved]
  - Abdominal pain lower [Recovered/Resolved]

NARRATIVE: CASE EVENT DATE: 2007
